FAERS Safety Report 14233369 (Version 1)
Quarter: 2017Q4

REPORT INFORMATION
  Report Type: Spontaneous
  Country: GR (occurrence: GR)
  Receive Date: 20171128
  Receipt Date: 20171128
  Transmission Date: 20180321
  Serious: Yes (Other)
  Sender: FDA-Public Use
  Company Number: GR-BAUSCH-BL-2017-032378

PATIENT
  Age: 54 Year
  Sex: Male

DRUGS (1)
  1. FLUOROURACIL. [Suspect]
     Active Substance: FLUOROURACIL
     Indication: RECTAL CANCER STAGE II
     Route: 065

REACTIONS (3)
  - Arteriospasm coronary [Unknown]
  - Cardiotoxicity [Unknown]
  - Hypersensitivity [Unknown]
